FAERS Safety Report 7283249-2 (Version None)
Quarter: 2011Q1

REPORT INFORMATION
  Report Type: 
  Country: None (occurrence: None)
  Receive Date: 20110209
  Receipt Date: 20110131
  Transmission Date: 20110831
  Serious: Yes (Hospitalization, Other)
  Sender: FDA-Public Use
  Company Number: PHHY2010CA85027

PATIENT
  Sex: Female

DRUGS (9)
  1. VITAMIN D [Concomitant]
     Dosage: UNK
  2. ZOCOR [Concomitant]
     Dosage: UNK
  3. NORVASC [Concomitant]
     Dosage: UNK
  4. PANTOLOC [Concomitant]
     Dosage: UNK
  5. SYNTHROID [Concomitant]
     Dosage: UNK
  6. ASAPHEN [Concomitant]
     Dosage: UNK
  7. ACLASTA [Suspect]
     Dosage: 5 MG/ 100 ML, ONCE A YEAR
     Route: 042
     Dates: start: 20100204
  8. CALCIUM [Concomitant]
     Dosage: UNK
  9. LOPRESSOR [Concomitant]
     Dosage: UNK

REACTIONS (9)
  - PYREXIA [None]
  - PAIN IN EXTREMITY [None]
  - MUSCULOSKELETAL PAIN [None]
  - BONE PAIN [None]
  - HEART RATE INCREASED [None]
  - BACK PAIN [None]
  - NECK PAIN [None]
  - INFECTION [None]
  - SPINAL OSTEOARTHRITIS [None]
